FAERS Safety Report 24236892 (Version 1)
Quarter: 2024Q3

REPORT INFORMATION
  Report Type: Report from Study
  Country: GB (occurrence: GB)
  Receive Date: 20240822
  Receipt Date: 20240822
  Transmission Date: 20241017
  Serious: Yes (Hospitalization, Other)
  Sender: SANDOZ
  Company Number: GB-SANDOZ-SDZ2023GB011506

PATIENT
  Sex: Male

DRUGS (2)
  1. OMNITROPE [Suspect]
     Active Substance: SOMATROPIN
     Indication: Hyperpituitarism
     Dosage: 0.60 MG, QD
     Route: 058
     Dates: start: 20230724
  2. OMNITROPE [Suspect]
     Active Substance: SOMATROPIN
     Dosage: 0.70 MG, QD
     Route: 058
     Dates: start: 20230723

REACTIONS (2)
  - Lip and/or oral cavity cancer [Not Recovered/Not Resolved]
  - Injection site pain [Unknown]
